FAERS Safety Report 24572522 (Version 1)
Quarter: 2024Q4

REPORT INFORMATION
  Report Type: Spontaneous
  Country: IN (occurrence: IN)
  Receive Date: 20241101
  Receipt Date: 20241101
  Transmission Date: 20250114
  Serious: Yes (Hospitalization)
  Sender: TORRENT PHARMA INC.
  Company Number: IN-MLMSERVICE-20241015-PI227707-00206-1

PATIENT
  Age: 23 Year
  Sex: Male

DRUGS (5)
  1. LITHIUM [Suspect]
     Active Substance: LITHIUM
     Indication: Bipolar disorder
     Route: 065
  2. RISPERIDONE [Suspect]
     Active Substance: RISPERIDONE
     Indication: Bipolar disorder
     Route: 065
  3. VALPROATE SODIUM [Suspect]
     Active Substance: VALPROATE SODIUM
     Indication: Bipolar disorder
     Route: 065
  4. TRIFLUOPERAZINE\TRIHEXYPHENIDYL [Suspect]
     Active Substance: TRIFLUOPERAZINE\TRIHEXYPHENIDYL
     Indication: Bipolar disorder
     Route: 065
  5. LORAZEPAM [Suspect]
     Active Substance: LORAZEPAM
     Indication: Bipolar disorder
     Route: 065

REACTIONS (7)
  - Muscle rigidity [Recovering/Resolving]
  - Tremor [Recovering/Resolving]
  - Salivary hypersecretion [Recovering/Resolving]
  - Dysphagia [Recovering/Resolving]
  - Extrapyramidal disorder [Recovering/Resolving]
  - Leukocytosis [Unknown]
  - Blood creatine phosphokinase [Unknown]
